FAERS Safety Report 24922564 (Version 4)
Quarter: 2025Q1

REPORT INFORMATION
  Report Type: Report from Study
  Country: HU (occurrence: HU)
  Receive Date: 20250204
  Receipt Date: 20250310
  Transmission Date: 20250409
  Serious: Yes (Hospitalization, Other)
  Sender: BIOVITRUM
  Company Number: HU-AstraZeneca-CH-00796854A

PATIENT
  Age: 6 Week
  Sex: Female
  Weight: 3.3 kg

DRUGS (2)
  1. PALIVIZUMAB [Suspect]
     Active Substance: PALIVIZUMAB
     Indication: Antiviral prophylaxis
     Route: 030
     Dates: start: 20250122
  2. VITAMIN D [Concomitant]
     Active Substance: VITAMIN D NOS
     Indication: Product used for unknown indication
     Route: 065

REACTIONS (3)
  - Nasal obstruction [Recovered/Resolved]
  - Cyanosis [Recovered/Resolved]
  - Neonatal dyspnoea [Recovered/Resolved]

NARRATIVE: CASE EVENT DATE: 20250127
